FAERS Safety Report 5014894-2 (Version None)
Quarter: 2006Q2

REPORT INFORMATION
  Report Type: 
  Country: None (occurrence: None)
  Receive Date: 20060414
  Receipt Date: 20060119
  Transmission Date: 20061013
  Serious: No
  Sender: FDA-Public Use
  Company Number: 2006SP000341

PATIENT
  Age: 67 Year
  Sex: Female
  Weight: 61.2356 kg

DRUGS (6)
  1. LUNESTA [Suspect]
     Dosage: 1 MG;ORAL
     Route: 048
     Dates: start: 20051201, end: 20051201
  2. AXID [Concomitant]
  3. AMLODIPINE [Concomitant]
  4. ESTROGENS [Concomitant]
  5. THYROID TAB [Concomitant]
  6. LORAZEPAM [Concomitant]

REACTIONS (2)
  - DRUG INEFFECTIVE [None]
  - MIDDLE INSOMNIA [None]
